FAERS Safety Report 8805331 (Version 1)
Quarter: 2012Q4

REPORT INFORMATION
  Report Type: Spontaneous
  Country: US (occurrence: None)
  Receive Date: 20120919
  Receipt Date: 20120919
  Transmission Date: 20130627
  Serious: No
  Sender: FDA-Public Use
  Company Number: None

PATIENT

DRUGS (2)
  1. DEMEROL [Suspect]
     Dosage: injectable, injection, 1.5 ml ampules
  2. DEMEROL [Suspect]
     Dosage: injectable, injection, 1 ml ampules

REACTIONS (3)
  - Drug dispensing error [None]
  - Incorrect dose administered [None]
  - Intercepted drug dispensing error [None]
